FAERS Safety Report 5334700-6 (Version None)
Quarter: 2007Q2

REPORT INFORMATION
  Report Type: 
  Country: None (occurrence: None)
  Receive Date: 20070521
  Receipt Date: 20070514
  Transmission Date: 20071010
  Serious: Yes (Death, Life-Threatening, Hospitalization)
  Sender: FDA-Public Use
  Company Number: CLOF-10531

PATIENT
  Age: 57 Year
  Sex: Male

DRUGS (19)
  1. CLOFARABINE. MFR: GENZYME [Suspect]
     Indication: ACUTE MYELOID LEUKAEMIA
     Dosage: 85.6 MG QD X 5 IV
     Route: 042
     Dates: start: 20070503, end: 20070507
  2. CYTARABINE [Suspect]
     Indication: ACUTE MYELOID LEUKAEMIA
     Dosage: 2.15 G QD X 5 IV
     Route: 042
     Dates: start: 20070502, end: 20070506
  3. VANCYCLOVIR [Concomitant]
  4. SERTRALINE [Concomitant]
  5. ALPRAZOLAM [Concomitant]
  6. VORICONAZOLE [Concomitant]
  7. PREDNISONE TAB [Concomitant]
  8. TRIMETHOPRIM + SULFAMETHOXAZOLE [Concomitant]
  9. ONDANSETRON [Concomitant]
  10. MORPHINE [Concomitant]
  11. PANTOPRAZOLE SODIUM [Concomitant]
  12. TEMAZEPAM [Concomitant]
  13. LOPERAMIDE HCL [Concomitant]
  14. LINEZOLID [Concomitant]
  15. PIPERACILLIN AND TAZOBACTAM [Concomitant]
  16. AMIODARONE HCL [Concomitant]
  17. DEXIMEDETOMIDINE [Concomitant]
  18. IBUTILIDE FUMARATE [Concomitant]
  19. AMPHOTERICIN B [Concomitant]

REACTIONS (12)
  - ATRIAL FIBRILLATION [None]
  - CARDIAC ARREST [None]
  - COAGULOPATHY [None]
  - CSF TEST ABNORMAL [None]
  - DIALYSIS [None]
  - ENTEROCOCCAL INFECTION [None]
  - HYPOTENSION [None]
  - NEUTROPENIA [None]
  - NO THERAPEUTIC RESPONSE [None]
  - RENAL FAILURE [None]
  - RESPIRATORY FAILURE [None]
  - SEPSIS [None]
